FAERS Safety Report 7603383-4 (Version None)
Quarter: 2011Q3

REPORT INFORMATION
  Report Type: 
  Country: None (occurrence: None)
  Receive Date: 20110712
  Receipt Date: 20110705
  Transmission Date: 20111222
  Serious: Yes (Life-Threatening, Other)
  Sender: FDA-Public Use
  Company Number: PHHY2011US60510

PATIENT
  Sex: Female

DRUGS (16)
  1. LISINOPRIL [Suspect]
  2. SODIUM CHLORIDE [Concomitant]
     Dosage: 20 MG, QD (ONCE AT THE BEDTIME)
  3. INSULIN [Concomitant]
  4. FLUROSEMIDE [Concomitant]
     Dosage: 2 DF, EVRY 3 DAYS AS NEEDED
  5. ASPIRIN [Concomitant]
     Dosage: 81 MG, BID
  6. RANITIDINE [Concomitant]
     Dosage: 300 MG, UNK
  7. METOPROLOL TARTRATE [Concomitant]
  8. CARDIS [Concomitant]
  9. PANTOPRAZOLE SOD DR [Concomitant]
     Dosage: 40 MG, ONE AT BEDTIME
  10. AMLODIPINE BESYLATE [Suspect]
  11. OXYCODONE HCL AND ACETAMINOPHEN [Concomitant]
     Dosage: 10/650 MG
  12. ALPRAZOLAM [Concomitant]
     Dosage: 2 MG, ONE TO THREE TIMES DAILY AS NEEDED
  13. TEKTURNA [Suspect]
     Dosage: 300 MG, QD
     Dates: start: 20070101
  14. CLONIDINE HYDROCHLORIDE [Concomitant]
     Dosage: 0.2 MG, TID
  15. PRAVASTATIN [Concomitant]
  16. POTASSIUM [Concomitant]
     Dosage: 2 EVERY 3 DAYS

REACTIONS (7)
  - CARDIAC DISORDER [None]
  - BLOOD PRESSURE INCREASED [None]
  - CHEST PAIN [None]
  - DRUG INEFFECTIVE [None]
  - OEDEMA PERIPHERAL [None]
  - HEART RATE INCREASED [None]
  - SUPRAVENTRICULAR TACHYCARDIA [None]
